FAERS Safety Report 6377725-4 (Version None)
Quarter: 2009Q3

REPORT INFORMATION
  Report Type: 
  Country: None (occurrence: None)
  Receive Date: 20090925
  Receipt Date: 20090915
  Transmission Date: 20100115
  Serious: Yes (Other)
  Sender: FDA-Public Use
  Company Number: US-PFIZER INC-2009271197

PATIENT
  Sex: Female
  Weight: 86.168 kg

DRUGS (1)
  1. NEURONTIN [Suspect]
     Indication: FIBROMYALGIA
     Dosage: 2X/DAY
     Route: 048
     Dates: start: 20080101, end: 20080101

REACTIONS (3)
  - DYSPNOEA [None]
  - SURGERY [None]
  - SWOLLEN TONGUE [None]
